FAERS Safety Report 9632170 (Version 3)
Quarter: 2014Q1

REPORT INFORMATION
  Report Type: Report from Study
  Country: DK (occurrence: DK)
  Receive Date: 20131018
  Receipt Date: 20140123
  Transmission Date: 20141002
  Serious: Yes (Other)
  Sender: FDA-Public Use
  Company Number: DK-CELGENEUS-044-21880-13101590

PATIENT
  Age: 77 Year
  Sex: Female
  Weight: 109 kg

DRUGS (4)
  1. REVLIMID [Suspect]
     Indication: PLASMA CELL MYELOMA
     Route: 048
     Dates: start: 20120320, end: 20130709
  2. MELPHALAN [Suspect]
     Indication: PLASMA CELL MYELOMA
     Route: 048
     Dates: start: 20120320, end: 20121126
  3. MELPHALAN [Suspect]
     Route: 065
     Dates: start: 200909
  4. PREDNISONE [Suspect]
     Indication: PLASMA CELL MYELOMA
     Route: 048
     Dates: start: 20120320, end: 20121126

REACTIONS (1)
  - Adenocarcinoma of colon [Not Recovered/Not Resolved]
